FAERS Safety Report 6330433-8 (Version None)
Quarter: 2009Q3

REPORT INFORMATION
  Report Type: 
  Country: None (occurrence: None)
  Receive Date: 20090826
  Receipt Date: 20090826
  Transmission Date: 20100115
  Serious: Yes (Life-Threatening, Other)
  Sender: FDA-Public Use
  Company Number: None

PATIENT
  Age: 44 Year
  Sex: Male
  Weight: 81.6475 kg

DRUGS (1)
  1. AMPHETAMINE SALTS 15MG BARR [Suspect]
     Indication: ATTENTION DEFICIT/HYPERACTIVITY DISORDER
     Dosage: 15MG  TWICE PER DAY PO
     Route: 048
     Dates: start: 20090702, end: 20090825

REACTIONS (10)
  - ANXIETY [None]
  - ATTENTION DEFICIT/HYPERACTIVITY DISORDER [None]
  - CONDITION AGGRAVATED [None]
  - DEPRESSION [None]
  - DRUG INEFFECTIVE [None]
  - DYSPHORIA [None]
  - FEELING JITTERY [None]
  - HYPERHIDROSIS [None]
  - TREMOR [None]
  - VISION BLURRED [None]
